FAERS Safety Report 8802428 (Version 2)
Quarter: 2015Q1

REPORT INFORMATION
  Report Type: Report from Study
  Country: US (occurrence: US)
  Receive Date: 20120921
  Receipt Date: 20150227
  Transmission Date: 20150721
  Serious: Yes (Death)
  Sender: FDA-Public Use
  Company Number: US-ROCHE-1102277

PATIENT
  Sex: Female
  Weight: 67 kg

DRUGS (6)
  1. AVASTIN [Suspect]
     Active Substance: BEVACIZUMAB
     Indication: OVARIAN CANCER
     Route: 065
  2. TAXOTERE [Concomitant]
     Active Substance: DOCETAXEL
  3. ZOFRAN [Concomitant]
     Active Substance: ONDANSETRON HYDROCHLORIDE
  4. AVASTIN [Suspect]
     Active Substance: BEVACIZUMAB
     Route: 065
  5. TAMOXIFEN [Concomitant]
     Active Substance: TAMOXIFEN
  6. GEMZAR [Concomitant]
     Active Substance: GEMCITABINE HYDROCHLORIDE

REACTIONS (5)
  - Disease progression [Unknown]
  - Oedema peripheral [Unknown]
  - Off label use [Unknown]
  - Death [Fatal]
  - Nausea [Unknown]
